FAERS Safety Report 11665761 (Version 1)
Quarter: 2015Q4

REPORT INFORMATION
  Report Type: Spontaneous
  Country: JP (occurrence: JP)
  Receive Date: 20151027
  Receipt Date: 20151027
  Transmission Date: 20160304
  Serious: Yes (Hospitalization)
  Sender: FDA-Public Use
  Company Number: JP-PFIZER INC-2015356756

PATIENT
  Age: 64 Year
  Sex: Female

DRUGS (1)
  1. PEGVISOMANT [Suspect]
     Active Substance: PEGVISOMANT
     Indication: ACROMEGALY
     Dosage: 10 MG, DAILY

REACTIONS (2)
  - Pituitary tumour benign [Unknown]
  - Disease progression [Unknown]
